FAERS Safety Report 17671039 (Version 1)
Quarter: 2020Q2

REPORT INFORMATION
  Report Type: Spontaneous
  Country: GB (occurrence: GB)
  Receive Date: 20200415
  Receipt Date: 20200415
  Transmission Date: 20200713
  Serious: Yes (Other)
  Sender: FDA-Public Use
  Company Number: GB-MYLANLABS-2020M1037647

PATIENT
  Age: 55 Year
  Sex: Female
  Weight: 68 kg

DRUGS (2)
  1. LANSOPRAZOLE. [Suspect]
     Active Substance: LANSOPRAZOLE
     Indication: GASTROOESOPHAGEAL REFLUX DISEASE
     Dosage: 20, 30, 40, 15MG AND DIFFERENT TIMES
     Route: 048
     Dates: start: 20080428, end: 20200217
  2. LEVOTHYROXINE SODIUM. [Concomitant]
     Active Substance: LEVOTHYROXINE SODIUM
     Dosage: UNK

REACTIONS (5)
  - Tension [Unknown]
  - Discomfort [Unknown]
  - Glossitis [Recovering/Resolving]
  - Facial pain [Recovering/Resolving]
  - Headache [Unknown]

NARRATIVE: CASE EVENT DATE: 20120401
